FAERS Safety Report 22118784 (Version 1)
Quarter: 2023Q1

REPORT INFORMATION
  Report Type: Report from Study
  Country: PR (occurrence: PR)
  Receive Date: 20230321
  Receipt Date: 20230321
  Transmission Date: 20230417
  Serious: Yes (Other)
  Sender: FDA-Public Use
  Company Number: PR-ABBVIE-4343230

PATIENT
  Sex: Female
  Weight: 86.636 kg

DRUGS (1)
  1. HUMIRA [Suspect]
     Active Substance: ADALIMUMAB
     Indication: Rheumatoid arthritis
     Route: 058
     Dates: start: 20191003

REACTIONS (6)
  - Giant cell arteritis [Recovering/Resolving]
  - Unevaluable event [Recovering/Resolving]
  - Inflammation [Recovering/Resolving]
  - Mobility decreased [Recovering/Resolving]
  - Arthralgia [Recovering/Resolving]
  - Cerebrovascular insufficiency [Unknown]

NARRATIVE: CASE EVENT DATE: 20230101
